FAERS Safety Report 11623567 (Version 1)
Quarter: 2015Q4

REPORT INFORMATION
  Report Type: Spontaneous
  Country: US (occurrence: US)
  Receive Date: 20151013
  Receipt Date: 20151013
  Transmission Date: 20160304
  Serious: No
  Sender: FDA-Public Use
  Company Number: US-JNJFOC-20150917011

PATIENT
  Age: 3 Year
  Sex: Female
  Weight: 13.15 kg

DRUGS (1)
  1. CHILDRENS TYLENOL [Suspect]
     Active Substance: ACETAMINOPHEN
     Indication: PYREXIA
     Dosage: 5 ML EVERY 4 HOURS
     Route: 048
     Dates: start: 20150918, end: 20150918

REACTIONS (1)
  - Expired product administered [Unknown]
